FAERS Safety Report 7551680-3 (Version None)
Quarter: 2011Q2

REPORT INFORMATION
  Report Type: 
  Country: None (occurrence: None)
  Receive Date: 20110616
  Receipt Date: 20110607
  Transmission Date: 20111010
  Serious: Yes (Hospitalization)
  Sender: FDA-Public Use
  Company Number: JP-ASTRAZENECA-2011SE35982

PATIENT
  Age: 67 Year
  Sex: Male

DRUGS (12)
  1. ACARBOSE [Suspect]
     Indication: TYPE 2 DIABETES MELLITUS
     Route: 048
     Dates: end: 20110417
  2. CANDESARTAN CILEXETIL AND HYDROCHLOROTHIAZIDE [Suspect]
     Indication: HYPERTENSION
     Dosage: CANDESARTAN CILEXETIL 16 MG/HYDROCHLOROTHIAZIDE 12.5 MG, 1 DF DAILY
     Route: 048
     Dates: end: 20110417
  3. ATENOLOL [Suspect]
     Route: 048
     Dates: start: 20110424
  4. MEDIATENSYL [Suspect]
     Indication: HYPERTENSION
     Route: 048
     Dates: end: 20110417
  5. ESCITALOPRAM [Suspect]
     Route: 048
     Dates: start: 20110424
  6. XANAX [Suspect]
     Indication: DEPRESSION
     Route: 048
     Dates: end: 20110417
  7. MIRTAZAPINE [Suspect]
     Indication: DEPRESSION
     Route: 048
     Dates: end: 20110417
  8. METFORMIN HCL [Suspect]
     Indication: TYPE 2 DIABETES MELLITUS
     Route: 048
     Dates: end: 20110417
  9. VERPAMIL HCL [Suspect]
     Indication: HYPERTENSION
     Route: 048
     Dates: end: 20110417
  10. ATENOLOL [Suspect]
     Indication: HYPERTENSION
     Route: 048
     Dates: end: 20110417
  11. ESCITALOPRAM [Suspect]
     Indication: DEPRESSION
     Route: 048
     Dates: end: 20110417
  12. CIPROFIBRATE [Suspect]
     Indication: DYSLIPIDAEMIA
     Route: 048
     Dates: end: 20110417

REACTIONS (3)
  - RENAL FAILURE ACUTE [None]
  - LACTIC ACIDOSIS [None]
  - HYPERKALAEMIA [None]
